FAERS Safety Report 8680005 (Version 4)
Quarter: 2012Q4

REPORT INFORMATION
  Report Type: Spontaneous
  Country: None (occurrence: None)
  Receive Date: 20120706
  Receipt Date: 20120814
  Transmission Date: 20130627
  Serious: Yes (Other)
  Sender: FDA-Public Use
  Company Number: AUR-APL-2012-02801

PATIENT
  Sex: Male

DRUGS (1)
  1. RAMIPRIL [Suspect]
     Indication: HYPERTENSION
     Dosage: 2.5 MG, ONCE DAILY IN THE MORNING (2.5 MG, 1 IN 1 D)

REACTIONS (3)
  - Balance disorder [None]
  - Neuropathy peripheral [None]
  - Disease recurrence [None]
